FAERS Safety Report 16097839 (Version 4)
Quarter: 2019Q2

REPORT INFORMATION
  Report Type: Report from Study
  Country: US (occurrence: US)
  Receive Date: 20190320
  Receipt Date: 20190625
  Transmission Date: 20190711
  Serious: Yes (Hospitalization)
  Sender: FDA-Public Use
  Company Number: US-TAKEDA-2018TUS022376

PATIENT
  Sex: Male

DRUGS (1)
  1. PONATINIB [Suspect]
     Active Substance: PONATINIB
     Indication: CHRONIC MYELOID LEUKAEMIA
     Dosage: 45 MILLIGRAM, QD
     Route: 048
     Dates: start: 201410

REACTIONS (11)
  - Fatigue [Unknown]
  - Fluid retention [Unknown]
  - Asthenia [Unknown]
  - Hypoaesthesia [Unknown]
  - Autoimmune disorder [Unknown]
  - Abdominal distension [Unknown]
  - Full blood count increased [Unknown]
  - Abdominal pain upper [Unknown]
  - Platelet count decreased [Unknown]
  - Platelet count increased [Unknown]
  - Muscle spasms [Unknown]
